FAERS Safety Report 18620785 (Version 1)
Quarter: 2020Q4

REPORT INFORMATION
  Report Type: Spontaneous
  Country: CN (occurrence: CN)
  Receive Date: 20201215
  Receipt Date: 20201215
  Transmission Date: 20210114
  Serious: Yes (Hospitalization)
  Sender: FDA-Public Use
  Company Number: CN-BAYER-2020-276705

PATIENT
  Age: 53 Year
  Sex: Male
  Weight: 62 kg

DRUGS (1)
  1. NEXAVAR [Suspect]
     Active Substance: SORAFENIB
     Indication: HEPATIC CANCER
     Dosage: 0.4 G, BID
     Route: 048
     Dates: start: 20200820, end: 20201211

REACTIONS (4)
  - Abdominal distension [None]
  - Myelosuppression [Unknown]
  - Diarrhoea [Unknown]
  - Rectal tenesmus [None]

NARRATIVE: CASE EVENT DATE: 2020
